FAERS Safety Report 21991959 (Version 2)
Quarter: 2023Q1

REPORT INFORMATION
  Report Type: Report from Study
  Country: NZ (occurrence: NZ)
  Receive Date: 20230214
  Receipt Date: 20230223
  Transmission Date: 20230418
  Serious: Yes (Death)
  Sender: FDA-Public Use
  Company Number: NZ-KARYOPHARM THERAPEUTICS, INC.-2023KPT000734

PATIENT
  Age: 84 Year
  Sex: Male

DRUGS (9)
  1. SELINEXOR [Suspect]
     Active Substance: SELINEXOR
     Indication: Plasma cell myeloma
     Dosage: 100 MG, WEEKLY
     Route: 048
     Dates: start: 20220906, end: 202209
  2. SELINEXOR [Suspect]
     Active Substance: SELINEXOR
     Dosage: 60 MG, WEEKLY
     Route: 048
     Dates: start: 20221003, end: 20230106
  3. DEXAMETHASONE [Concomitant]
     Active Substance: DEXAMETHASONE
     Indication: Plasma cell myeloma
  4. FELODIPINE [Concomitant]
     Active Substance: FELODIPINE
     Dosage: 10 MG, QD
  5. ATORVASTATIN [Concomitant]
     Active Substance: ATORVASTATIN
     Dosage: 40 MG, QD, AT BED TIME
  6. ALLOPURINOL APOTEX [Concomitant]
     Dosage: 300 MG, QD
  7. QUINAPRIL [Concomitant]
     Active Substance: QUINAPRIL
     Dosage: 10 MG, QD
  8. VALACYCLOVIR HYDROCHLORIDE [Concomitant]
     Active Substance: VALACYCLOVIR HYDROCHLORIDE
     Dosage: 500 MG, QD
  9. ASPIRIN ACTAVIS [Concomitant]
     Dosage: 100 MG, QD

REACTIONS (3)
  - Aortic dissection [Fatal]
  - Confusional state [Recovered/Resolved]
  - Nausea [Recovered/Resolved]

NARRATIVE: CASE EVENT DATE: 20220901
